FAERS Safety Report 8519216-8 (Version None)
Quarter: 2012Q3

REPORT INFORMATION
  Report Type: 
  Country: None (occurrence: None)
  Receive Date: 20120718
  Receipt Date: 20120709
  Transmission Date: 20120928
  Serious: Yes (Other)
  Sender: FDA-Public Use
  Company Number: ES-JNJFOC-20120705577

PATIENT
  Age: 31 Year
  Sex: Male
  Weight: 80 kg

DRUGS (2)
  1. REMICADE [Suspect]
     Indication: BEHCET'S SYNDROME
     Route: 042
     Dates: start: 20081203, end: 20081203
  2. REMICADE [Suspect]
     Dosage: DOSE REPORTED AS ^400^ (UNITS NOT PROVIDED)
     Route: 042
     Dates: start: 20080311

REACTIONS (4)
  - CHEST PAIN [None]
  - DERMATITIS EXFOLIATIVE [None]
  - DYSPNOEA [None]
  - INFUSION RELATED REACTION [None]
